FAERS Safety Report 6694207-0 (Version None)
Quarter: 2010Q2

REPORT INFORMATION
  Report Type: 
  Country: None (occurrence: None)
  Receive Date: 20100423
  Receipt Date: 20100420
  Transmission Date: 20101027
  Serious: Yes (Hospitalization)
  Sender: FDA-Public Use
  Company Number: NL-ROCHE-694668

PATIENT
  Sex: Female

DRUGS (5)
  1. ROACTEMRA [Suspect]
     Dosage: TOCILIZUMAB INFUSION POSTPONED.
     Route: 042
     Dates: start: 20100218
  2. PARACETAMOL [Concomitant]
     Route: 048
  3. VOLTAREN [Concomitant]
     Route: 061
  4. TRAMAL [Concomitant]
     Route: 048
  5. TRAMADOL HCL [Concomitant]
     Route: 048

REACTIONS (1)
  - TRANSIENT GLOBAL AMNESIA [None]
